FAERS Safety Report 16637036 (Version 1)
Quarter: 2019Q3

REPORT INFORMATION
  Report Type: Spontaneous
  Country: NL (occurrence: NL)
  Receive Date: 20190726
  Receipt Date: 20190726
  Transmission Date: 20191004
  Serious: Yes (Hospitalization)
  Sender: FDA-Public Use
  Company Number: NL-PFIZER INC-2019312664

PATIENT
  Age: 77 Year
  Sex: Female
  Weight: 92 kg

DRUGS (14)
  1. TEMAZEPAM. [Concomitant]
     Active Substance: TEMAZEPAM
     Dosage: ZN 1DD10MG
     Route: 042
     Dates: start: 20190217
  2. GRANISETRON [Concomitant]
     Active Substance: GRANISETRON
     Dosage: 1 MG, AS NEEDED (AS NEEDED, 2X/DAY, 1MG)
     Dates: start: 20190219
  3. OXYCODONE [OXYCODONE HYDROCHLORIDE] [Concomitant]
     Active Substance: OXYCODONE HYDROCHLORIDE
     Dosage: 5 MG, 2X/DAY (2X/DAY, 5MG)
     Dates: start: 20190219
  4. METOPROLOL. [Concomitant]
     Active Substance: METOPROLOL
     Dosage: 25 MG, 1X/DAY (1X/DAY, 25MG)
     Dates: start: 20190216
  5. VANCOMYCIN HCL [Suspect]
     Active Substance: VANCOMYCIN HYDROCHLORIDE
     Indication: PATHOGEN RESISTANCE
  6. OXYCODONE [OXYCODONE HYDROCHLORIDE] [Concomitant]
     Active Substance: OXYCODONE HYDROCHLORIDE
     Dosage: 5 MG, AS NEEDED (AS NEEDED, 6X/DAILY, 5MG)
     Dates: start: 20190219
  7. IPRAXA [Concomitant]
     Dosage: 2 ML, AS NEEDED (AS NEEDED, 3X/DAY, 2ML)
     Dates: start: 20190221
  8. PANTOPRAZOL [PANTOPRAZOLE] [Concomitant]
     Active Substance: PANTOPRAZOLE
     Dosage: 40 MG, 1X/DAY (1X/DAY, 40MG)
     Dates: start: 20190314
  9. FRAXIPARINE [Concomitant]
     Active Substance: NADROPARIN CALCIUM
     Dosage: 2850 IU, 1X/DAY (1X/DAY, 2850IU)
     Dates: start: 20190216
  10. PREGABALINE [Concomitant]
     Active Substance: PREGABALIN
     Dosage: 75 MG, 1X/DAY (1X/DAY, 75MG)
     Dates: start: 20190221
  11. METAMIZOL [Concomitant]
     Active Substance: METAMIZOLE SODIUM
     Dosage: 1000 MG, 4X/DAY (4X/DAY, 1000MG)
     Dates: start: 20190313
  12. PARACETAMOL [Concomitant]
     Active Substance: ACETAMINOPHEN
     Dosage: 1000 MG, 4X/DAY (4X/DAY, 1000MG)
     Dates: start: 20190304
  13. PSYLLIUMVEZELS [Concomitant]
     Dosage: 1 DF, AS NEEDED (AS NEEDED, 3X/DAY 1 BAG)
     Dates: start: 20190311
  14. VANCOMYCIN HCL [Suspect]
     Active Substance: VANCOMYCIN HYDROCHLORIDE
     Indication: WOUND
     Dosage: 1000 MG, 2X/DAY
     Route: 050
     Dates: start: 20190313, end: 20190406

REACTIONS (4)
  - Pyrexia [Recovered/Resolved]
  - Rash erythematous [Recovered/Resolved]
  - Rash pruritic [Recovered/Resolved]
  - Localised oedema [Recovered/Resolved]

NARRATIVE: CASE EVENT DATE: 20190406
